FAERS Safety Report 24973077 (Version 1)
Quarter: 2025Q1

REPORT INFORMATION
  Report Type: Spontaneous
  Country: DE (occurrence: DE)
  Receive Date: 20250216
  Receipt Date: 20250216
  Transmission Date: 20250409
  Serious: Yes (Congenital Anomaly, Other)
  Sender: AUROBINDO
  Company Number: DE-EMB-M202302868-1

PATIENT
  Sex: Male
  Weight: 3.13 kg

DRUGS (4)
  1. MELATONIN [Suspect]
     Active Substance: MELATONIN
     Indication: Sleep disorder
     Dosage: 3 MILLIGRAM, ONCE A DAY
     Route: 064
     Dates: start: 202302, end: 202305
  2. ASPIRIN [Concomitant]
     Active Substance: ASPIRIN
     Indication: Prophylaxis
     Route: 064
     Dates: start: 202305, end: 202309
  3. COVAXIS [Concomitant]
     Indication: Immunisation
     Route: 064
     Dates: start: 202309, end: 202309
  4. INFLUVAC TETRA [Concomitant]
     Active Substance: INFLUENZA VIRUS VACCINE QUADRIVALENT TYPE A+B
     Indication: Immunisation
     Route: 064
     Dates: start: 202310, end: 202310

REACTIONS (2)
  - Congenital diaphragmatic hernia [Recovered/Resolved]
  - Foetal exposure during pregnancy [Unknown]

NARRATIVE: CASE EVENT DATE: 20230501
